FAERS Safety Report 8258739-6 (Version None)
Quarter: 2012Q2

REPORT INFORMATION
  Report Type: 
  Country: None (occurrence: None)
  Receive Date: 20120404
  Receipt Date: 20120404
  Transmission Date: 20120825
  Serious: Yes (Other)
  Sender: FDA-Public Use
  Company Number: None

PATIENT
  Age: 64 Year
  Sex: Male
  Weight: 59 kg

DRUGS (1)
  1. CARIMUNE [Suspect]
     Indication: CHRONIC INFLAMMATORY DEMYELINATING POLYRADICULONEUROPATHY
     Dosage: 24 GRAMS
     Route: 041
     Dates: start: 20111202, end: 20111204

REACTIONS (2)
  - RENAL IMPAIRMENT [None]
  - HAEMODIALYSIS [None]
